FAERS Safety Report 9516266 (Version 1)
Quarter: 2013Q3

REPORT INFORMATION
  Report Type: Spontaneous
  Country: ES (occurrence: None)
  Receive Date: 20130909
  Receipt Date: 20130909
  Transmission Date: 20140515
  Serious: Yes (Hospitalization)
  Sender: FDA-Public Use
  Company Number: SYM-2013-10410

PATIENT
  Age: 28 Year
  Sex: Male

DRUGS (5)
  1. FLUOROURACIL [Suspect]
     Indication: SALIVARY GLAND CANCER
  2. CARBOPLATIN [Suspect]
     Indication: SALIVARY GLAND CANCER
  3. DOCETAXEL [Suspect]
     Indication: SALIVARY GLAND CANCER
  4. CISPLATIN [Suspect]
     Indication: SALIVARY GLAND CANCER
  5. THERAPEUTIC RADIOPHARMACEUTICALS(THERAPEUTIC RADIOPHARMACEUTICALS) [Concomitant]

REACTIONS (1)
  - Febrile neutropenia [None]
